FAERS Safety Report 7099393-9 (Version None)
Quarter: 2010Q4

REPORT INFORMATION
  Report Type: 
  Country: None (occurrence: None)
  Receive Date: 20101112
  Receipt Date: 20101111
  Transmission Date: 20110411
  Serious: Yes (Hospitalization)
  Sender: FDA-Public Use
  Company Number: US-PFIZER INC-2007097081

PATIENT
  Sex: Female
  Weight: 66.213 kg

DRUGS (12)
  1. BLINDED *NO SUBJECT DRUG [Suspect]
     Indication: TRANSITIONAL CELL CARCINOMA
     Dosage: UNK
     Route: 048
     Dates: start: 20071107, end: 20071116
  2. PLACEBO [Suspect]
     Indication: TRANSITIONAL CELL CARCINOMA
     Dosage: UNK
     Route: 048
     Dates: start: 20071107, end: 20071116
  3. SUNITINIB MALATE [Suspect]
     Indication: TRANSITIONAL CELL CARCINOMA
     Dosage: UNK
     Route: 048
     Dates: start: 20071107, end: 20071116
  4. COMPAZINE [Concomitant]
     Dosage: UNK
     Dates: start: 20071001
  5. RANITIDINE [Concomitant]
     Dosage: UNK
     Dates: start: 20071107
  6. DARVOCET [Concomitant]
     Dosage: UNK
     Dates: start: 20071001
  7. LOMOTIL [Concomitant]
     Dosage: UNK
     Dates: start: 20071001
  8. ATIVAN [Concomitant]
     Dosage: UNK
     Dates: start: 20071024
  9. PROTONIX [Concomitant]
     Dosage: UNK
     Dates: start: 20070413, end: 20071106
  10. PROZAC [Concomitant]
     Dosage: UNK
     Dates: start: 20071001
  11. TYLENOL [Concomitant]
     Dosage: UNK
     Dates: start: 20060302
  12. CENTRUM [Concomitant]
     Dosage: UNK
     Dates: start: 20060302

REACTIONS (3)
  - HYPOKALAEMIA [None]
  - HYPOVOLAEMIA [None]
  - SMALL INTESTINAL OBSTRUCTION [None]
